FAERS Safety Report 7793224-7 (Version None)
Quarter: 2011Q4

REPORT INFORMATION
  Report Type: 
  Country: None (occurrence: None)
  Receive Date: 20111003
  Receipt Date: 20110926
  Transmission Date: 20120403
  Serious: Yes (Other)
  Sender: FDA-Public Use
  Company Number: DE-ELI_LILLY_AND_COMPANY-DE201107007509

PATIENT
  Age: 56 Year
  Sex: Male
  Weight: 112 kg

DRUGS (13)
  1. BYETTA [Suspect]
     Dosage: 10 UG, BID
     Route: 058
     Dates: start: 20101112, end: 20110728
  2. ASPIRIN [Concomitant]
     Dosage: 100 MG, UNK
  3. METFORMIN HCL [Concomitant]
     Indication: DIABETES MELLITUS
     Dosage: 1000 MG, BID
     Route: 048
  4. SIMVASTATIN [Concomitant]
     Dosage: 40 DF, EACH EVENING
     Dates: end: 20110501
  5. METOPROLOL SUCCINATE [Concomitant]
     Indication: CORONARY ARTERY DISEASE
     Dosage: 1 DF, QD
     Route: 048
  6. PANTOPRAZOLE [Concomitant]
     Dosage: 40 DF, BID
  7. BYETTA [Suspect]
     Indication: TYPE 2 DIABETES MELLITUS
     Dosage: 5 UG, BID
     Dates: start: 20101015, end: 20101111
  8. MARCUMAR [Concomitant]
     Indication: CORONARY ARTERY BYPASS
     Dosage: UNK
     Route: 048
  9. DIOVAN [Concomitant]
     Indication: HYPERTENSION
     Dosage: 80 MG, QD
     Route: 048
  10. METOPROLOL SUCCINATE [Concomitant]
     Dosage: 100 MG, BID
  11. PRAVASTATIN [Concomitant]
  12. DIOVAN [Concomitant]
     Dosage: 160 DF, EACH MORNING
  13. DICLO-DIVIDO [Concomitant]

REACTIONS (3)
  - HYPERTRIGLYCERIDAEMIA [None]
  - WEIGHT DECREASED [None]
  - PANCREATITIS [None]
